FAERS Safety Report 20214547 (Version 3)
Quarter: 2021Q4

REPORT INFORMATION
  Report Type: Report from Study
  Country: US (occurrence: US)
  Receive Date: 20211221
  Receipt Date: 20211229
  Transmission Date: 20220303
  Serious: Yes (Other)
  Sender: FDA-Public Use
  Company Number: US-JNJFOC-20211008515

PATIENT
  Age: 69 Year
  Sex: Female
  Weight: 63.560 kg

DRUGS (6)
  1. STELARA [Suspect]
     Active Substance: USTEKINUMAB
     Indication: Crohn^s disease
     Route: 058
  2. STELARA [Suspect]
     Active Substance: USTEKINUMAB
     Dosage: 90.00 MG/ML
     Route: 030
  3. STELARA [Suspect]
     Active Substance: USTEKINUMAB
     Dosage: FOURTH INJECTION
     Route: 058
     Dates: start: 20211214
  4. PREDNISONE [Concomitant]
     Active Substance: PREDNISONE
  5. IMODIUM [Concomitant]
     Active Substance: LOPERAMIDE HYDROCHLORIDE
  6. ERGOCALCIFEROL [Concomitant]
     Active Substance: ERGOCALCIFEROL

REACTIONS (5)
  - Cholecystectomy [Unknown]
  - Crohn^s disease [Not Recovered/Not Resolved]
  - Off label use [Unknown]
  - Incorrect route of product administration [Unknown]
  - Drug ineffective [Unknown]
